FAERS Safety Report 7434530-5 (Version None)
Quarter: 2011Q2

REPORT INFORMATION
  Report Type: 
  Country: None (occurrence: None)
  Receive Date: 20110425
  Receipt Date: 20110418
  Transmission Date: 20111010
  Serious: Yes (Death, Hospitalization, Other)
  Sender: FDA-Public Use
  Company Number: JP-JNJFOC-20110406654

PATIENT
  Age: 63 Year
  Sex: Female

DRUGS (26)
  1. ITRIZOLE [Suspect]
     Route: 048
  2. ETOPOSIDE [Suspect]
     Route: 065
  3. PREDNISOLONE [Suspect]
     Indication: EXTRANODAL NK/T-CELL LYMPHOMA, NASAL TYPE
     Route: 065
  4. AMPHOTERICIN B [Suspect]
     Route: 065
  5. ITRIZOLE [Suspect]
     Indication: PNEUMONIA
     Route: 048
  6. METHOTREXATE [Suspect]
     Indication: EXTRANODAL NK/T-CELL LYMPHOMA, NASAL TYPE
     Route: 065
  7. MICAFUNGIN [Suspect]
     Indication: PNEUMONIA
     Route: 065
  8. VANCOMYCIN [Suspect]
     Indication: ANTIBIOTIC RESISTANT STAPHYLOCOCCUS TEST
     Route: 065
  9. ETOPOSIDE [Suspect]
     Indication: EXTRANODAL NK/T-CELL LYMPHOMA, NASAL TYPE
     Route: 065
  10. CYTARABINE [Suspect]
     Indication: EXTRANODAL NK/T-CELL LYMPHOMA, NASAL TYPE
     Route: 065
  11. MEROPENEM [Suspect]
     Indication: PRODUCT USED FOR UNKNOWN INDICATION
     Route: 065
  12. MICAFUNGIN [Suspect]
     Route: 065
  13. VINCRISTINE [Suspect]
     Indication: EXTRANODAL NK/T-CELL LYMPHOMA, NASAL TYPE
     Route: 065
  14. POLYGAM S/D [Suspect]
     Indication: PNEUMONIA
     Route: 065
  15. AMPHOTERICIN B [Suspect]
     Indication: ANTIFUNGAL PROPHYLAXIS
     Route: 065
  16. ELSPAR [Suspect]
     Indication: EXTRANODAL NK/T-CELL LYMPHOMA, NASAL TYPE
     Route: 065
  17. CARBOPLATIN [Suspect]
     Indication: EXTRANODAL NK/T-CELL LYMPHOMA, NASAL TYPE
     Route: 065
  18. CYCLOPHOSPHAMIDE [Suspect]
     Indication: EXTRANODAL NK/T-CELL LYMPHOMA, NASAL TYPE
     Route: 065
  19. DOXORUBICIN [Concomitant]
     Indication: EXTRANODAL NK/T-CELL LYMPHOMA, NASAL TYPE
     Route: 042
  20. ITRIZOLE [Suspect]
     Route: 048
  21. IFOSFAMIDE [Suspect]
     Indication: EXTRANODAL NK/T-CELL LYMPHOMA, NASAL TYPE
     Route: 065
  22. ITRIZOLE [Suspect]
     Indication: PROPHYLAXIS
     Route: 048
  23. IFOSFAMIDE [Suspect]
     Route: 065
  24. MICAFUNGIN [Suspect]
     Route: 065
  25. DEXAMETHASONE [Suspect]
     Indication: EXTRANODAL NK/T-CELL LYMPHOMA, NASAL TYPE
     Route: 065
  26. ISEPAMICIN [Suspect]
     Indication: PNEUMONIA
     Route: 065

REACTIONS (4)
  - DRUG INEFFECTIVE [None]
  - PNEUMONIA [None]
  - BLOOD BETA-D-GLUCAN ABNORMAL [None]
  - BRONCHOPULMONARY ASPERGILLOSIS [None]
